FAERS Safety Report 4896235-4 (Version None)
Quarter: 2006Q1

REPORT INFORMATION
  Report Type: 
  Country: None (occurrence: None)
  Receive Date: 20060126
  Receipt Date: 20060113
  Transmission Date: 20060701
  Serious: Yes (Other)
  Sender: FDA-Public Use
  Company Number: 2006008916

PATIENT
  Sex: Female
  Weight: 58.9676 kg

DRUGS (8)
  1. CELEBREX [Suspect]
     Indication: BACK DISORDER
     Dosage: 200 MG (200 MG, 1 IN 1 D)
  2. FLONASE [Concomitant]
  3. ADVAIR DISKUS 100/50 [Concomitant]
  4. EVISTA [Concomitant]
  5. SINGULAIR [Concomitant]
  6. CYCLOBENZAPRINE (CYCLOBENZAPRINE) [Concomitant]
  7. IMIPRAMINE [Concomitant]
  8. PROPOXYPHENE HCL AND ACETAMINOPHEN (DEXTROPROPOXYPHENE HYDROCHLORIDE, [Concomitant]

REACTIONS (2)
  - BODY HEIGHT DECREASED [None]
  - SKIN HAEMORRHAGE [None]
